FAERS Safety Report 4338971-4 (Version None)
Quarter: 2004Q2

REPORT INFORMATION
  Report Type: 
  Country: None (occurrence: None)
  Receive Date: 20040409
  Receipt Date: 20040327
  Transmission Date: 20050107
  Serious: Yes (Other)
  Sender: FDA-Public Use
  Company Number: 2003125029

PATIENT
  Sex: Female

DRUGS (7)
  1. NEURONTIN [Suspect]
     Indication: AFFECTIVE DISORDER
     Dosage: 400 MG (TID)
  2. NEURONTIN [Suspect]
     Indication: ANXIETY
     Dosage: 400 MG (TID)
  3. ZOLOFT [Suspect]
     Indication: ANXIETY
     Dosage: 200 MG DAILY)
  4. ZOLOFT [Suspect]
     Indication: DEPRESSION
     Dosage: 200 MG DAILY)
  5. ESCITALOPRAM (ESCITALOPRAM) [Concomitant]
  6. VENLAFAXINE HCL [Concomitant]
  7. CLONAZEPAM [Concomitant]

REACTIONS (3)
  - COGNITIVE DISORDER [None]
  - FEELING ABNORMAL [None]
  - SOMNOLENCE [None]
